FAERS Safety Report 17829522 (Version 1)
Quarter: 2020Q2

REPORT INFORMATION
  Report Type: Spontaneous
  Country: IT (occurrence: IT)
  Receive Date: 20200527
  Receipt Date: 20200527
  Transmission Date: 20200714
  Serious: Yes (Other)
  Sender: FDA-Public Use
  Company Number: IT-AMGEN-ITASP2019197238

PATIENT
  Age: 61 Year
  Sex: Male
  Weight: 95 kg

DRUGS (6)
  1. BRUFEN [IBUPROFEN SODIUM] [Concomitant]
     Dosage: 600 MILLIGRAM
     Route: 048
  2. DELTACORTENE [Concomitant]
     Active Substance: PREDNISONE
     Dosage: UNK
     Route: 048
  3. SALAZOPYRIN EN [Concomitant]
     Active Substance: SULFASALAZINE
     Dosage: 1500 MILLIGRAM
     Route: 048
  4. AMGEVITA [Suspect]
     Active Substance: ADALIMUMAB
     Indication: RHEUMATOID ARTHRITIS
     Dosage: 40 MILLIGRAM, CYCLICAL
     Route: 058
     Dates: start: 20190301, end: 20190601
  5. LOSARTAN. [Concomitant]
     Active Substance: LOSARTAN
     Dosage: 100 MILLIGRAM
     Route: 048
  6. LASIX [Concomitant]
     Active Substance: FUROSEMIDE
     Dosage: 25 MILLIGRAM
     Route: 048

REACTIONS (2)
  - Rheumatoid arthritis [Recovered/Resolved]
  - Drug ineffective [Recovered/Resolved]

NARRATIVE: CASE EVENT DATE: 20190501
